FAERS Safety Report 4267161-9 (Version None)
Quarter: 2004Q1

REPORT INFORMATION
  Report Type: 
  Country: None (occurrence: None)
  Receive Date: 20040107
  Receipt Date: 20031226
  Transmission Date: 20041129
  Serious: Yes (Death, Other)
  Sender: FDA-Public Use
  Company Number: NSADSS2003008102

PATIENT
  Age: 56 Year
  Sex: Female
  Weight: 70.7611 kg

DRUGS (1)
  1. REMICADE [Suspect]
     Indication: RHEUMATOID ARTHRITIS
     Dosage: 10 ML, 1 IN 1 AS NECESSARY, INTRAVENOUS DRIP
     Route: 041

REACTIONS (5)
  - LUNG NEOPLASM MALIGNANT [None]
  - METASTASES TO BONE [None]
  - METASTASES TO CENTRAL NERVOUS SYSTEM [None]
  - METASTASES TO LIVER [None]
  - PANCYTOPENIA [None]
